FAERS Safety Report 9240988 (Version 1)
Quarter: 2013Q2

REPORT INFORMATION
  Report Type: Spontaneous
  Country: US (occurrence: None)
  Receive Date: 20130418
  Receipt Date: 20130418
  Transmission Date: 20140414
  Serious: No
  Sender: FDA-Public Use
  Company Number: None

PATIENT
  Age: 32 Year
  Sex: Female
  Weight: 73.48 kg

DRUGS (1)
  1. PARAGUARD [Suspect]

REACTIONS (11)
  - Device issue [None]
  - Device dislocation [None]
  - Pregnancy with contraceptive device [None]
  - Abdominal pain [None]
  - Arthralgia [None]
  - Back pain [None]
  - Device dislocation [None]
  - Dyspareunia [None]
  - Influenza like illness [None]
  - Vomiting [None]
  - Malaise [None]
